FAERS Safety Report 26069064 (Version 1)
Quarter: 2025Q4

REPORT INFORMATION
  Report Type: Spontaneous
  Country: US (occurrence: None)
  Receive Date: 20251119
  Receipt Date: 20251119
  Transmission Date: 20260118
  Serious: Yes (Hospitalization)
  Sender: FDA-CTU
  Company Number: None

PATIENT
  Age: 34 Year
  Sex: Female
  Weight: 50.5 kg

DRUGS (11)
  1. ALYFTREK [Suspect]
     Active Substance: DEUTIVACAFTOR\TEZACAFTOR\VANZACAFTOR
     Indication: Cystic fibrosis
     Dosage: 10/50/125 MG DAILY OAL ? ?
     Dates: start: 20250905, end: 20251023
  2. TOBRAMYCIN [Concomitant]
     Active Substance: TOBRAMYCIN
  3. ALBUTEROL HFA INH [Concomitant]
  4. AZITHROMYCIN [Concomitant]
     Active Substance: AZITHROMYCIN
  5. CITALOPRAM 10MG TAB [Concomitant]
  6. ENVARSUS XR [Concomitant]
     Active Substance: TACROLIMUS
  7. NOVOLOG U-100 INSULIN VIAL [Concomitant]
  8. MYCOPHENOLIC ACID [Concomitant]
     Active Substance: MYCOPHENOLIC ACID
  9. PREDNISONE [Concomitant]
     Active Substance: PREDNISONE
  10. SULFAMETH/TRIMETH 400-B0MG TAB [Concomitant]
  11. ZENPEP 40000 IU CAP [Concomitant]

REACTIONS (4)
  - Arthropathy [None]
  - Fatigue [None]
  - Anaemia [None]
  - Therapy cessation [None]

NARRATIVE: CASE EVENT DATE: 20251023
